FAERS Safety Report 4401422-5 (Version None)
Quarter: 2004Q3

REPORT INFORMATION
  Report Type: 
  Country: None (occurrence: None)
  Receive Date: 20040907
  Receipt Date: 20040427
  Transmission Date: 20050211
  Serious: No
  Sender: FDA-Public Use
  Company Number: US-BRISTOL-MYERS SQUIBB COMPANY-12573465

PATIENT
  Age: 58 Year
  Sex: Female
  Weight: 72 kg

DRUGS (10)
  1. COUMADIN [Suspect]
     Indication: THROMBOSIS
     Dosage: DOSE VALUE:  5 MG FIVE DAYS A WEEK, ALTERNATING WITH 2.5 MG THE OTHER TWO DAYS.
     Route: 048
     Dates: start: 20040306
  2. FUROSEMIDE [Concomitant]
  3. LIPITOR [Concomitant]
  4. NEXIUM [Concomitant]
  5. IBUPROFEN [Concomitant]
  6. WELLBUTRIN [Concomitant]
  7. MUCO-FEN [Concomitant]
  8. ENALAPRIL MALEATE [Concomitant]
  9. COREG [Concomitant]
  10. SPIRONOLACTONE [Concomitant]

REACTIONS (1)
  - ALOPECIA [None]
